FAERS Safety Report 5050538-1 (Version None)
Quarter: 2006Q4

REPORT INFORMATION
  Report Type: 
  Country: None (occurrence: None)
  Receive Date: 20060707
  Receipt Date: 20060628
  Transmission Date: 20070319
  Serious: Yes (Death)
  Sender: FDA-Public Use
  Company Number: FRWYE859028JUN06

PATIENT
  Sex: Female

DRUGS (2)
  1. EFFEXOR [Suspect]
     Indication: GENERALISED ANXIETY DISORDER
     Dosage: 75 MG TOTAL DAILY
     Route: 048
     Dates: start: 20060101
  2. ANXIOLYTICS                           (ANXIOLYTICS, , 0) [Suspect]
     Indication: GENERALISED ANXIETY DISORDER
     Route: 048

REACTIONS (4)
  - ANXIETY [None]
  - COMPLETED SUICIDE [None]
  - DRUG INEFFECTIVE [None]
  - INSOMNIA [None]
